FAERS Safety Report 17399759 (Version 1)
Quarter: 2020Q1

REPORT INFORMATION
  Report Type: Spontaneous
  Country: IT (occurrence: IT)
  Receive Date: 20200211
  Receipt Date: 20200211
  Transmission Date: 20200409
  Serious: Yes (Other)
  Sender: FDA-Public Use
  Company Number: IT-TEVA-2020-IT-1183947

PATIENT
  Age: 60 Year
  Sex: Female
  Weight: 61 kg

DRUGS (1)
  1. LETROZOLO TEVA 2,5 MG COMPRESSE RIVESTITE CON FILM [Suspect]
     Active Substance: LETROZOLE
     Route: 048
     Dates: start: 20180601

REACTIONS (3)
  - Myalgia [Unknown]
  - Dysmetria [Unknown]
  - Arthralgia [Unknown]

NARRATIVE: CASE EVENT DATE: 20180912
